FAERS Safety Report 14247380 (Version 3)
Quarter: 2018Q1

REPORT INFORMATION
  Report Type: Spontaneous
  Country: DE (occurrence: DE)
  Receive Date: 20171204
  Receipt Date: 20180122
  Transmission Date: 20180508
  Serious: Yes (Hospitalization, Disabling, Other)
  Sender: FDA-Public Use
  Company Number: DE-AMGEN-DEUSP2017178166

PATIENT
  Age: 72 Year
  Sex: Female
  Weight: 53 kg

DRUGS (22)
  1. TARGIN [Concomitant]
     Active Substance: NALOXONE HYDROCHLORIDE\OXYCODONE HYDROCHLORIDE
     Dosage: UNK UNK, BID
  2. BISOPROLOL [Concomitant]
     Active Substance: BISOPROLOL
     Dosage: 2.5 MG, BID
  3. SAROTEN [Concomitant]
     Active Substance: AMITRIPTYLINE
     Dosage: UNK UNK, QD
  4. MCP [Concomitant]
     Active Substance: METOCLOPRAMIDE HYDROCHLORIDE
     Dosage: UNK UNK, AS NECESSARY
  5. PREGABADOR [Concomitant]
     Dosage: 50 UNK, TID
  6. ATORVASTATIN [Concomitant]
     Active Substance: ATORVASTATIN
     Dosage: UNK UNK, 10 TO 20 MG QD
  7. PANTAZOLE [Concomitant]
     Active Substance: PANTOPRAZOLE SODIUM
     Dosage: 40 MG, BID
  8. PROLIA [Suspect]
     Active Substance: DENOSUMAB
     Indication: OSTEOPOROSIS
     Dosage: 60 MG, Q6MO
     Route: 058
     Dates: start: 20111006, end: 20161018
  9. SELEN [Concomitant]
     Active Substance: SELENIUM
     Dosage: UNK UNK, QD
  10. MUCOFALK [Concomitant]
     Dosage: UNK UNK, BID
  11. FORTEO [Concomitant]
     Active Substance: TERIPARATIDE
     Indication: OSTEOPOROSIS
     Dosage: 20 MUG, QD
     Route: 058
  12. ORTOTON [Concomitant]
     Dosage: 750 MG, TID
  13. HEPARIN [Concomitant]
     Active Substance: HEPARIN SODIUM
     Indication: THROMBOSIS PROPHYLAXIS
     Dosage: UNK
  14. FROXIMUN [Concomitant]
     Dosage: UNK UNK, AS NECESSARY
  15. VALSARTAN. [Concomitant]
     Active Substance: VALSARTAN
     Dosage: UNK UNK, 40 TO 80 MG BID
  16. LYRICA [Concomitant]
     Active Substance: PREGABALIN
     Dosage: 25 MG, TID
  17. TAVOR (LORAZEPAM) [Concomitant]
     Active Substance: LORAZEPAM
     Dosage: UNK UNK, QD
  18. CLEXANE [Concomitant]
     Active Substance: ENOXAPARIN SODIUM
     Dosage: 40 MG, QD
  19. DEKRISTOL [Concomitant]
     Active Substance: CHOLECALCIFEROL
     Indication: BONE DISORDER
     Dosage: 20000 IU, QWK
     Dates: start: 20130830
  20. DEKRISTOL [Concomitant]
     Active Substance: CHOLECALCIFEROL
     Indication: SUPPORTIVE CARE
  21. PALEXIA [Concomitant]
     Active Substance: TAPENTADOL HYDROCHLORIDE
     Dosage: 50 MG, BID
  22. CELECOXIB. [Concomitant]
     Active Substance: CELECOXIB
     Dosage: 100 UNK, BID

REACTIONS (15)
  - Lumbar vertebral fracture [Not Recovered/Not Resolved]
  - Rebound effect [Not Recovered/Not Resolved]
  - Urinary tract infection bacterial [Unknown]
  - Musculoskeletal pain [Unknown]
  - Post-traumatic stress disorder [Unknown]
  - Bronchitis [Unknown]
  - Goitre [Unknown]
  - Spinal fusion surgery [Not Recovered/Not Resolved]
  - Procedural pain [Unknown]
  - Multiple fractures [Unknown]
  - Thoracic vertebral fracture [Not Recovered/Not Resolved]
  - Gastritis [Unknown]
  - Gait disturbance [Unknown]
  - Drug ineffective [Unknown]
  - Foot deformity [Unknown]

NARRATIVE: CASE EVENT DATE: 20150220
